FAERS Safety Report 7495031-1 (Version None)
Quarter: 2011Q2

REPORT INFORMATION
  Report Type: 
  Country: None (occurrence: None)
  Receive Date: 20110520
  Receipt Date: 20110511
  Transmission Date: 20111010
  Serious: Yes (Hospitalization, Other)
  Sender: FDA-Public Use
  Company Number: FR-ELI_LILLY_AND_COMPANY-FR201105002791

PATIENT
  Age: 59 Year
  Sex: Male

DRUGS (1)
  1. BYETTA [Suspect]
     Dosage: 20 UG, BID
     Route: 058

REACTIONS (2)
  - OVERDOSE [None]
  - GASTRIC CANCER [None]
